FAERS Safety Report 5132599-4 (Version None)
Quarter: 2006Q4

REPORT INFORMATION
  Report Type: 
  Country: None (occurrence: None)
  Receive Date: 20061023
  Receipt Date: 20061011
  Transmission Date: 20070319
  Serious: Yes (Hospitalization)
  Sender: FDA-Public Use
  Company Number: IT-ROCHE-466718

PATIENT
  Age: 54 Year
  Sex: Male

DRUGS (3)
  1. MYCOPHENOLATE MOFETIL [Suspect]
     Route: 048
     Dates: start: 20051215
  2. TACROLIMUS [Suspect]
     Route: 048
     Dates: start: 20051215
  3. TACROLIMUS [Suspect]
     Route: 048

REACTIONS (1)
  - NEPHROPATHY TOXIC [None]
